FAERS Safety Report 23447985 (Version 3)
Quarter: 2024Q1

REPORT INFORMATION
  Report Type: Spontaneous
  Country: US (occurrence: US)
  Receive Date: 20240126
  Receipt Date: 20240314
  Transmission Date: 20240410
  Serious: No
  Sender: FDA-Public Use
  Company Number: US-Merz Pharmaceuticals GmbH-24-00147

PATIENT
  Sex: Female

DRUGS (2)
  1. XEOMIN [Suspect]
     Active Substance: INCOBOTULINUMTOXINA
     Indication: Product used for unknown indication
  2. XEOMIN [Suspect]
     Active Substance: INCOBOTULINUMTOXINA

REACTIONS (5)
  - Pain [Unknown]
  - Injection site mass [Not Recovered/Not Resolved]
  - Hypoaesthesia eye [Unknown]
  - Injection site urticaria [Not Recovered/Not Resolved]
  - Injection site swelling [Recovering/Resolving]
